FAERS Safety Report 14613592 (Version 1)
Quarter: 2018Q1

REPORT INFORMATION
  Report Type: Spontaneous
  Country: US (occurrence: US)
  Receive Date: 20180308
  Receipt Date: 20180308
  Transmission Date: 20180509
  Serious: Yes (Hospitalization)
  Sender: FDA-Public Use
  Company Number: None

PATIENT
  Age: 54 Year
  Sex: Male

DRUGS (1)
  1. NAPROXEN. [Suspect]
     Active Substance: NAPROXEN
     Indication: PAIN
     Route: 048
     Dates: start: 20180208

REACTIONS (7)
  - Vomiting [None]
  - Pancreatic necrosis [None]
  - Cough [None]
  - Food intolerance [None]
  - Musculoskeletal chest pain [None]
  - Rhinorrhoea [None]
  - Pancreatitis [None]

NARRATIVE: CASE EVENT DATE: 20180221
